FAERS Safety Report 5968702-3 (Version None)
Quarter: 2008Q4

REPORT INFORMATION
  Report Type: 
  Country: None (occurrence: None)
  Receive Date: 20081126
  Receipt Date: 20081123
  Transmission Date: 20090506
  Serious: Yes (Death)
  Sender: FDA-Public Use
  Company Number: US-JNJFOC-20081106135

PATIENT
  Age: 8 Week
  Sex: Female
  Weight: 4.08 kg

DRUGS (2)
  1. INFANTS MYLICON [Suspect]
     Indication: FLATULENCE
     Route: 048
  2. AMOXICILLIN [Concomitant]
     Indication: EAR INFECTION

REACTIONS (1)
  - DEATH [None]
